FAERS Safety Report 17362265 (Version 1)
Quarter: 2020Q1

REPORT INFORMATION
  Report Type: Spontaneous
  Country: EE (occurrence: EE)
  Receive Date: 20200203
  Receipt Date: 20200203
  Transmission Date: 20200409
  Serious: Yes (Death, Hospitalization)
  Sender: FDA-Public Use
  Company Number: EE-JNJFOC-20200138951

PATIENT
  Age: 87 Year
  Sex: Female

DRUGS (5)
  1. DIGOXIN. [Concomitant]
     Active Substance: DIGOXIN
     Dosage: UNK
  2. TRIFAS                             /01036501/ [Concomitant]
     Dosage: UNK
  3. CARDACE                            /00885601/ [Concomitant]
     Active Substance: RAMIPRIL
     Dosage: UNK
  4. RIVAROXABAN [Suspect]
     Active Substance: RIVAROXABAN
     Indication: ATRIAL FIBRILLATION
     Dosage: 15 MG, QD
     Route: 048
     Dates: start: 20191004, end: 20191217
  5. PRAVAHEXAL [Concomitant]
     Dosage: UNK

REACTIONS (1)
  - Ischaemic stroke [Fatal]

NARRATIVE: CASE EVENT DATE: 20191217
